FAERS Safety Report 21308418 (Version 1)
Quarter: 2022Q3

REPORT INFORMATION
  Report Type: Spontaneous
  Country: US (occurrence: US)
  Receive Date: 20220908
  Receipt Date: 20220908
  Transmission Date: 20221027
  Serious: No
  Sender: FDA-Public Use
  Company Number: US-BIOGEN-2022BI01153512

PATIENT
  Sex: Female

DRUGS (8)
  1. TECFIDERA [Suspect]
     Active Substance: DIMETHYL FUMARATE
     Indication: Multiple sclerosis
     Route: 050
  2. TOPIRAMATE [Concomitant]
     Active Substance: TOPIRAMATE
     Route: 050
  3. ZYRTEC [Concomitant]
     Active Substance: CETIRIZINE HYDROCHLORIDE
     Route: 050
  4. AMLODIPINE [Concomitant]
     Active Substance: AMLODIPINE BESYLATE
     Route: 050
  5. ESTRADIOL [Concomitant]
     Active Substance: ESTRADIOL
     Route: 050
  6. PANTOPRAZOLE [Concomitant]
     Active Substance: PANTOPRAZOLE
     Route: 050
  7. BUDESONIDE [Concomitant]
     Active Substance: BUDESONIDE
     Route: 050
  8. OCREVUS [Concomitant]
     Active Substance: OCRELIZUMAB
     Route: 050

REACTIONS (4)
  - White blood cell count decreased [Unknown]
  - Hypersensitivity [Unknown]
  - Hot flush [Unknown]
  - Abdominal pain upper [Unknown]
